FAERS Safety Report 24559367 (Version 2)
Quarter: 2025Q3

REPORT INFORMATION
  Report Type: Report from Study
  Country: US (occurrence: US)
  Receive Date: 20241029
  Receipt Date: 20250803
  Transmission Date: 20251021
  Serious: Yes (Other)
  Sender: ALEXION PHARMACEUTICALS
  Company Number: US-ASTRAZENECA-202410USA019728US

PATIENT
  Sex: Female

DRUGS (19)
  1. BENRALIZUMAB [Suspect]
     Active Substance: BENRALIZUMAB
     Indication: Asthma
     Dosage: 30 MILLIGRAM, Q8W
  2. BREZTRI [Concomitant]
     Active Substance: BUDESONIDE\FORMOTEROL\GLYCOPYRROLATE
     Route: 065
  3. ROSUVASTATIN [Concomitant]
     Active Substance: ROSUVASTATIN
     Route: 065
  4. ALBUTEROL SULFATE [Concomitant]
     Active Substance: ALBUTEROL SULFATE
     Route: 065
  5. ALLOPURINOL [Concomitant]
     Active Substance: ALLOPURINOL
     Route: 065
  6. CARVEDILOL [Concomitant]
     Active Substance: CARVEDILOL
  7. COLESEVELAM [Concomitant]
     Active Substance: COLESEVELAM
  8. DULOXETINE [Concomitant]
     Active Substance: DULOXETINE
  9. FLECAINIDE [Concomitant]
     Active Substance: FLECAINIDE
  10. FUROSEMIDE [Concomitant]
     Active Substance: FUROSEMIDE
     Route: 065
  11. GLIMEPIRIDE [Concomitant]
     Active Substance: GLIMEPIRIDE
  12. IPRATROPIUM [Concomitant]
     Active Substance: IPRATROPIUM
     Route: 065
  13. MAGNESIUM [Concomitant]
     Active Substance: MAGNESIUM
     Route: 065
  14. MONTELUKAST [Concomitant]
     Active Substance: MONTELUKAST
  15. VITAMINS [Concomitant]
     Active Substance: VITAMINS
     Route: 065
  16. OMEPRAZOLE [Concomitant]
     Active Substance: OMEPRAZOLE
  17. POTASSIUM [Concomitant]
     Active Substance: POTASSIUM
  18. VALSARTAN [Concomitant]
     Active Substance: VALSARTAN
  19. VITAMIN D [Concomitant]
     Active Substance: VITAMIN D NOS

REACTIONS (4)
  - Impaired gastric emptying [Unknown]
  - Cough [Unknown]
  - Dizziness [Unknown]
  - Dyspnoea [Unknown]
